FAERS Safety Report 6801787-0 (Version None)
Quarter: 2010Q2

REPORT INFORMATION
  Report Type: 
  Country: None (occurrence: None)
  Receive Date: 20100629
  Receipt Date: 20100625
  Transmission Date: 20101027
  Serious: Yes (Life-Threatening, Other)
  Sender: FDA-Public Use
  Company Number: PHHY2010US41614

PATIENT
  Age: 58 Year
  Sex: Female

DRUGS (1)
  1. COMBIPATCH [Suspect]
     Dosage: 0.5/14MG

REACTIONS (1)
  - FEELING ABNORMAL [None]
